FAERS Safety Report 7224848-3 (Version None)
Quarter: 2011Q1

REPORT INFORMATION
  Report Type: 
  Country: None (occurrence: None)
  Receive Date: 20110104
  Receipt Date: 20101217
  Transmission Date: 20110831
  Serious: No
  Sender: FDA-Public Use
  Company Number: PHHY2010JP84337

PATIENT
  Age: 75 Year
  Sex: Female
  Weight: 54.4 kg

DRUGS (3)
  1. LOXOPROFEN (LOXOPROFEN) [Concomitant]
  2. FLUVOXAMINE MALEATE [Suspect]
     Indication: DEMENTIA
     Dosage: 1.4 MG/KG PER DAY ORAL
     Route: 048
  3. TERNELIN (TIZANIDINE HYDROCHLORIDE) UNKNOWN [Suspect]
     Dosage: 0.04 MG/KG PER DAY ORAL
     Route: 048

REACTIONS (4)
  - DRUG INTERACTION [None]
  - THERMAL BURN [None]
  - BLOOD PRESSURE INCREASED [None]
  - HEART RATE INCREASED [None]
